FAERS Safety Report 8796188 (Version 2)
Quarter: 2012Q4

REPORT INFORMATION
  Report Type: 
  Country: US (occurrence: US)
  Receive Date: 20120920
  Receipt Date: 20121105
  Transmission Date: 20130627
  Serious: Yes (Other)
  Sender: FDA-Public Use
  Company Number: US-PFIZER INC-2012230218

PATIENT
  Age: 20 Year
  Sex: Female
  Weight: 56.7 kg

DRUGS (2)
  1. SERTRALINE HCL [Suspect]
     Indication: DEPRESSION
     Dosage: 100 mg, UNK
  2. SERTRALINE HCL [Suspect]
     Indication: ANXIETY
     Dosage: 200 mg, daily

REACTIONS (3)
  - Product coating issue [Recovered/Resolved]
  - Throat irritation [Recovered/Resolved]
  - Choking [Recovered/Resolved]
